FAERS Safety Report 9260412 (Version 1)
Quarter: 2013Q2

REPORT INFORMATION
  Report Type: Spontaneous
  Country: SE (occurrence: SE)
  Receive Date: 20130429
  Receipt Date: 20130429
  Transmission Date: 20140414
  Serious: Yes (Death)
  Sender: FDA-Public Use
  Company Number: SE-ROXANE LABORATORIES, INC.-2013-RO-00636RO

PATIENT
  Age: 28 Year
  Sex: Male

DRUGS (6)
  1. BUPRENORPHINE HYDROCHLORIDE [Suspect]
  2. MORPHINE [Suspect]
  3. CODEINE SULFATE [Suspect]
  4. ALPRAZOLAM INTENSOL [ORAL SOLUTION (CONCENTRATE)] 1 MG/ML [Suspect]
  5. ACETAMINOPHEN [Suspect]
  6. HEROIN [Suspect]

REACTIONS (1)
  - Accidental overdose [Fatal]
